FAERS Safety Report 18955225 (Version 1)
Quarter: 2021Q1

REPORT INFORMATION
  Report Type: Report from Study
  Country: None (occurrence: DE)
  Receive Date: 20210302
  Receipt Date: 20210302
  Transmission Date: 20210420
  Serious: Yes (Other)
  Sender: FDA-Public Use
  Company Number: DE-ABBVIE-21K-062-3793686-00

PATIENT
  Age: 39 Year
  Sex: Female

DRUGS (4)
  1. L?THYROXIN [Concomitant]
     Active Substance: LEVOTHYROXINE SODIUM
     Indication: AUTOIMMUNE THYROIDITIS
     Route: 048
     Dates: start: 2019
  2. CORTISON [Suspect]
     Active Substance: CORTISONE ACETATE
     Route: 048
  3. HUMIRA [Suspect]
     Active Substance: ADALIMUMAB
     Indication: UVEITIS
     Route: 058
     Dates: start: 20200802, end: 202011
  4. CORTISON [Suspect]
     Active Substance: CORTISONE ACETATE
     Indication: UVEITIS
     Dosage: ENTRY DOSE: 50 MG, TAPERING OFF DOWN TO 20 MG IN 10 STEPS, IN STEPS OF 2.5 MG TILL 10 MG
     Route: 048
     Dates: start: 202003, end: 202009

REACTIONS (4)
  - Chronic kidney disease [Not Recovered/Not Resolved]
  - General physical health deterioration [Recovered/Resolved]
  - Eye disorder [Not Recovered/Not Resolved]
  - Alopecia [Recovered/Resolved]

NARRATIVE: CASE EVENT DATE: 202009
